FAERS Safety Report 4990774-3 (Version None)
Quarter: 2006Q2

REPORT INFORMATION
  Report Type: 
  Country: None (occurrence: None)
  Receive Date: 20060503
  Receipt Date: 20060428
  Transmission Date: 20061013
  Serious: Yes (Other)
  Sender: FDA-Public Use
  Company Number: JP-BOEHRINGER INGELHEIM PHARMACEUTICALS, INC.-2006-BP-04857NB

PATIENT
  Age: 53 Year
  Sex: Female

DRUGS (2)
  1. MICARDIS [Suspect]
     Route: 048
     Dates: start: 20040201, end: 20040301
  2. OTHER 5 DRUGS [Suspect]

REACTIONS (1)
  - LIVER DISORDER [None]
